FAERS Safety Report 5640926-4 (Version None)
Quarter: 2008Q1

REPORT INFORMATION
  Report Type: 
  Country: None (occurrence: None)
  Receive Date: 20080225
  Receipt Date: 20080215
  Transmission Date: 20080703
  Serious: Yes (Hospitalization)
  Sender: FDA-Public Use
  Company Number: WAES 0802USA03597

PATIENT
  Age: 55 Year
  Sex: Male

DRUGS (9)
  1. DECADRON [Suspect]
     Indication: PNEUMONITIS
     Dosage: 4 MG/BID/PO
     Route: 048
     Dates: start: 20080120
  2. TEMODAR [Suspect]
     Indication: GLIOBLASTOMA MULTIFORME
     Dosage: 75 MG/DAILY; 135 MG/DAILY; 100 MG/DAILY
     Dates: start: 20080118, end: 20080123
  3. TEMODAR [Suspect]
     Indication: GLIOBLASTOMA MULTIFORME
     Dosage: 75 MG/DAILY; 135 MG/DAILY; 100 MG/DAILY
     Dates: start: 20070628
  4. AZMACORT [Concomitant]
  5. BIAXIN [Concomitant]
  6. PROVENTIL [Concomitant]
  7. VENTOLIN [Concomitant]
  8. XANAX [Concomitant]
  9. GASTROINTESTINAL PREPARATIONS [Concomitant]

REACTIONS (2)
  - PNEUMONIA [None]
  - PNEUMONITIS [None]
